FAERS Safety Report 7272125-7 (Version None)
Quarter: 2011Q1

REPORT INFORMATION
  Report Type: 
  Country: None (occurrence: None)
  Receive Date: 20110203
  Receipt Date: 20110124
  Transmission Date: 20110831
  Serious: Yes (Hospitalization)
  Sender: FDA-Public Use
  Company Number: GB-ELI_LILLY_AND_COMPANY-GB200910006325

PATIENT
  Sex: Female

DRUGS (14)
  1. METFORMIN HCL [Concomitant]
     Indication: DIABETES MELLITUS
     Dates: start: 20040101
  2. ATROVENT [Concomitant]
     Indication: DYSPNOEA
     Dates: start: 20090101
  3. VENTOLIN [Concomitant]
     Indication: DYSPNOEA
     Dates: start: 20090101
  4. GLICAZIDA [Concomitant]
     Indication: DIABETES MELLITUS
     Dates: start: 20070101
  5. BETNOVATE /00008501/ [Concomitant]
     Indication: DRY SKIN
     Dates: start: 20091013
  6. FLUCONAZOLE [Concomitant]
     Indication: ORAL CANDIDIASIS
     Dosage: 100 MG, DAILY (1/D)
     Dates: start: 20091010
  7. FOLIC ACID [Concomitant]
     Indication: PROPHYLAXIS
     Dates: start: 20090903
  8. PRAVASTATIN [Concomitant]
     Indication: BLOOD CHOLESTEROL INCREASED
     Dates: start: 20040101
  9. MONTELUKAST SODIUM [Concomitant]
     Indication: ASTHMA
     Dates: start: 20030101
  10. PEMETREXED [Suspect]
     Indication: CHEMOTHERAPY
     Dosage: 750 MG, UNKNOWN
     Dates: start: 20090910
  11. ACETAMINOPHEN [Concomitant]
     Indication: PAIN
     Dosage: UNK, AS NEEDED
     Dates: start: 20080101
  12. DEXAMETHASONE [Concomitant]
     Indication: PROPHYLAXIS
     Dates: start: 20091001
  13. VIT B12 [Concomitant]
     Indication: PROPHYLAXIS
     Dates: start: 20090903
  14. ONDANSETRON [Concomitant]
     Indication: NAUSEA
     Dates: start: 20091013

REACTIONS (4)
  - PERICARDIAL EFFUSION [None]
  - PLEURAL EFFUSION [None]
  - VOMITING [None]
  - DIARRHOEA [None]
